FAERS Safety Report 16778859 (Version 2)
Quarter: 2019Q3

REPORT INFORMATION
  Report Type: Report from Study
  Country: US (occurrence: US)
  Receive Date: 20190906
  Receipt Date: 20190906
  Transmission Date: 20191005
  Serious: No
  Sender: FDA-Public Use
  Company Number: US-EMD SERONO-9094768

PATIENT
  Age: 33 Year
  Sex: Female
  Weight: 126 kg

DRUGS (1)
  1. MAVENCLAD [Suspect]
     Active Substance: CLADRIBINE
     Indication: MULTIPLE SCLEROSIS
     Dosage: PRESCRIBED WITH TWO TABLETS OF 10MG DAILY FOR 5 CONSECUTIVE DAYS, BUT TOOK ONLY 1 TABLET DAILY FOR 5
     Route: 048
     Dates: start: 20190517

REACTIONS (1)
  - Treatment noncompliance [Unknown]

NARRATIVE: CASE EVENT DATE: 20190517
